FAERS Safety Report 13894570 (Version 1)
Quarter: 2017Q3

REPORT INFORMATION
  Report Type: Report from Study
  Country: None (occurrence: US)
  Receive Date: 20170823
  Receipt Date: 20170823
  Transmission Date: 20171127
  Serious: Yes (Other)
  Sender: FDA-Public Use
  Company Number: US-ABBVIE-16K-163-1534877-00

PATIENT
  Age: 52 Year
  Sex: Male

DRUGS (1)
  1. HUMIRA [Suspect]
     Active Substance: ADALIMUMAB
     Indication: PSORIASIS
     Route: 058
     Dates: start: 20120601

REACTIONS (4)
  - Psoriasis [Recovering/Resolving]
  - Headache [Recovered/Resolved]
  - Carpal tunnel syndrome [Unknown]
  - Headache [Unknown]

NARRATIVE: CASE EVENT DATE: 201707
